FAERS Safety Report 25622891 (Version 1)
Quarter: 2025Q3

REPORT INFORMATION
  Report Type: Spontaneous
  Country: US (occurrence: None)
  Receive Date: 20250730
  Receipt Date: 20250730
  Transmission Date: 20251021
  Serious: Yes (Hospitalization)
  Sender: FDA-CTU
  Company Number: None

PATIENT
  Age: 81 Year
  Sex: Female

DRUGS (2)
  1. STELARA [Suspect]
     Active Substance: USTEKINUMAB
     Route: 058
  2. OZEMPIC [Suspect]
     Active Substance: SEMAGLUTIDE

REACTIONS (9)
  - Rhinorrhoea [None]
  - Sinusitis [None]
  - Vaginal infection [None]
  - Food poisoning [None]
  - Diarrhoea [None]
  - Nausea [None]
  - Vomiting [None]
  - Headache [None]
  - Fatigue [None]
